FAERS Safety Report 21932107 (Version 4)
Quarter: 2024Q4

REPORT INFORMATION
  Report Type: Spontaneous
  Country: CA (occurrence: CA)
  Receive Date: 20230131
  Receipt Date: 20241007
  Transmission Date: 20250115
  Serious: Yes (Other)
  Sender: PFIZER
  Company Number: CA-PFIZER INC-202300041136

PATIENT
  Age: 43 Year
  Sex: Female

DRUGS (4)
  1. XELJANZ [Suspect]
     Active Substance: TOFACITINIB CITRATE
     Indication: Colitis ulcerative
     Dosage: 10 MG, 2X/DAY
     Route: 048
     Dates: start: 20221018, end: 2024
  2. BUDESONIDE [Concomitant]
     Active Substance: BUDESONIDE
     Dosage: 1 DF
  3. PREDNISONE [Concomitant]
     Active Substance: PREDNISONE
     Dosage: UNK, OFF PREDNISONE
     Dates: end: 202301
  4. DIENOGEST [Concomitant]
     Active Substance: DIENOGEST
     Dosage: 1 DF

REACTIONS (4)
  - Rectal haemorrhage [Recovered/Resolved]
  - Therapeutic product effect incomplete [Unknown]
  - Off label use [Unknown]
  - Condition aggravated [Not Recovered/Not Resolved]

NARRATIVE: CASE EVENT DATE: 20240101
